FAERS Safety Report 4287258-7 (Version None)
Quarter: 2004Q1

REPORT INFORMATION
  Report Type: 
  Country: None (occurrence: None)
  Receive Date: 20040126
  Receipt Date: 20030826
  Transmission Date: 20041129
  Serious: No
  Sender: FDA-Public Use
  Company Number: USA030639795

PATIENT
  Age: 85 Year
  Sex: Female
  Weight: 59 kg

DRUGS (10)
  1. FORTEO [Suspect]
     Indication: OSTEOPOROSIS
     Dosage: 20 UG/DAY
     Dates: start: 20030618, end: 20030619
  2. EVISTA [Concomitant]
  3. MIACALCIN [Concomitant]
  4. LEVOTHROID [Concomitant]
  5. FUROSEMIDE [Concomitant]
  6. K-DUR 10 [Concomitant]
  7. OSCAL 500-D [Concomitant]
  8. CIMETIDINE HCL [Concomitant]
  9. VITAMIN B COMPLEX CAP [Concomitant]
  10. CLINDAMYCIN [Concomitant]

REACTIONS (7)
  - ARTHRALGIA [None]
  - BACK PAIN [None]
  - DIZZINESS [None]
  - HEART RATE INCREASED [None]
  - INJECTION SITE ERYTHEMA [None]
  - INJECTION SITE HAEMORRHAGE [None]
  - MUSCLE SPASMS [None]
